FAERS Safety Report 5850257-5 (Version None)
Quarter: 2008Q3

REPORT INFORMATION
  Report Type: 
  Country: None (occurrence: None)
  Receive Date: 20080819
  Receipt Date: 20080811
  Transmission Date: 20090109
  Serious: Yes (Other)
  Sender: FDA-Public Use
  Company Number: PHHY2008FI17618

PATIENT
  Sex: Female

DRUGS (5)
  1. GLEEVEC [Suspect]
     Indication: LEUKAEMIA
     Dosage: 400 MG/DAY
     Dates: start: 20080702, end: 20080802
  2. CELLCEPT [Concomitant]
     Dosage: 2000 MG/DAY
     Dates: start: 20080618
  3. SANDIMMUNE [Concomitant]
     Dosage: 100 MG/DAY
     Dates: start: 20080228
  4. VALCYTE [Concomitant]
     Indication: CYTOMEGALOVIRUS INFECTION
     Dosage: 900 MG/DAY
     Dates: start: 20080701
  5. MEDROL [Concomitant]
     Dosage: 12 MG/DAY
     Dates: start: 20080601

REACTIONS (1)
  - CUTANEOUS VASCULITIS [None]
